FAERS Safety Report 4882425-3 (Version None)
Quarter: 2006Q1

REPORT INFORMATION
  Report Type: 
  Country: None (occurrence: None)
  Receive Date: 20060113
  Receipt Date: 20050610
  Transmission Date: 20060701
  Serious: Yes (Other)
  Sender: FDA-Public Use
  Company Number: 2005087206

PATIENT
  Age: 40 Year
  Sex: Female
  Weight: 52.6173 kg

DRUGS (4)
  1. ROGAINE [Suspect]
     Indication: ALOPECIA
     Dosage: 5 SPRAYS (0.83 ML) QD,TOPICAL
     Route: 061
     Dates: start: 20010101
  2. LEVONORGESTREL [Concomitant]
  3. CITALOPRAM HYDROBROMIDE [Concomitant]
  4. TRAZODONE HCL [Concomitant]

REACTIONS (2)
  - APPLICATION SITE IRRITATION [None]
  - MEDICATION ERROR [None]
